FAERS Safety Report 26205927 (Version 1)
Quarter: 2025Q4

REPORT INFORMATION
  Report Type: Spontaneous
  Country: US (occurrence: US)
  Receive Date: 20251229
  Receipt Date: 20251229
  Transmission Date: 20260117
  Serious: No
  Sender: SANOFI AVENTIS
  Company Number: US-SA-2025SA386504

PATIENT
  Age: 68 Year
  Sex: Female

DRUGS (6)
  1. DUPIXENT [Suspect]
     Active Substance: DUPILUMAB
     Indication: Dermatitis allergic
     Dosage: 300 MG
     Route: 058
     Dates: start: 20250712
  2. SUCRALFATE [Concomitant]
     Active Substance: SUCRALFATE
  3. HORSE CHESTNUT [Concomitant]
     Active Substance: HORSE CHESTNUT
  4. GLUCOSAMINE [Concomitant]
     Active Substance: GLUCOSAMINE
  5. MEGA MULTIVITAMIN WITH MINERALS [Concomitant]
  6. ESTRACE [Concomitant]
     Active Substance: ESTRADIOL

REACTIONS (1)
  - Rash [Not Recovered/Not Resolved]

NARRATIVE: CASE EVENT DATE: 20251222
